FAERS Safety Report 6972610-9 (Version None)
Quarter: 2010Q3

REPORT INFORMATION
  Report Type: 
  Country: None (occurrence: None)
  Receive Date: 20100909
  Receipt Date: 20100901
  Transmission Date: 20110219
  Serious: Yes (Other)
  Sender: FDA-Public Use
  Company Number: BR-PFIZER INC-2010109981

PATIENT
  Age: 66 Year
  Sex: Male

DRUGS (5)
  1. LIPITOR [Suspect]
     Indication: BLOOD CHOLESTEROL INCREASED
     Dosage: 2 TABLETS OF 20MG/DAY
     Route: 048
     Dates: start: 20050101
  2. LIPITOR [Suspect]
     Dosage: 4 TABLETS OF 20MG/DAY
     Route: 048
  3. ENALAPRIL [Concomitant]
     Indication: HYPERTENSION
     Dosage: UNK
  4. ATENOLOL [Concomitant]
     Indication: HYPERTENSION
     Dosage: UNK
  5. ASPIRIN [Concomitant]
     Dosage: UNK

REACTIONS (6)
  - ASTHENIA [None]
  - BLOOD CHOLESTEROL ABNORMAL [None]
  - DIZZINESS [None]
  - MUSCLE SPASMS [None]
  - PALPITATIONS [None]
  - WEIGHT DECREASED [None]
